FAERS Safety Report 24114672 (Version 1)
Quarter: 2024Q3

REPORT INFORMATION
  Report Type: Spontaneous
  Country: GB (occurrence: GB)
  Receive Date: 20240721
  Receipt Date: 20240721
  Transmission Date: 20241017
  Serious: Yes (Other)
  Sender: MYLAN
  Company Number: GB-CHEPLA-2024008616

PATIENT
  Sex: Male

DRUGS (3)
  1. OLANZAPINE [Suspect]
     Active Substance: OLANZAPINE
     Indication: Product used for unknown indication
     Dosage: 40 MILLIGRAM, UNK (WAS TITRATED UP TO 40 MG)
     Route: 065
  2. OLANZAPINE [Suspect]
     Active Substance: OLANZAPINE
     Dosage: 10 MILLIGRAM, UNK (REDUCED TO 10 MG)
     Route: 065
  3. OLANZAPINE [Suspect]
     Active Substance: OLANZAPINE
     Dosage: 60 MILLIGRAM, UNK (SLOWLY INCREASED BACK UP TO 60)
     Route: 065

REACTIONS (1)
  - Bradycardia [Unknown]
